FAERS Safety Report 12534861 (Version 3)
Quarter: 2016Q4

REPORT INFORMATION
  Report Type: Spontaneous
  Country: JP (occurrence: JP)
  Receive Date: 20160707
  Receipt Date: 20161010
  Transmission Date: 20170207
  Serious: Yes (Hospitalization, Other)
  Sender: FDA-Public Use
  Company Number: JP-ROCHE-1789522

PATIENT
  Age: 51 Year
  Sex: Female
  Weight: 57 kg

DRUGS (6)
  1. ZOLPIDEM TARTRATE. [Concomitant]
     Active Substance: ZOLPIDEM TARTRATE
     Route: 048
     Dates: start: 20150401
  2. CARBOPLATIN. [Suspect]
     Active Substance: CARBOPLATIN
     Indication: OVARIAN CANCER
     Route: 041
  3. MECOBALAMIN [Concomitant]
     Active Substance: METHYLCOBALAMIN
     Indication: HYPOAESTHESIA
     Route: 048
     Dates: start: 20150924, end: 20151211
  4. PACLITAXEL. [Suspect]
     Active Substance: PACLITAXEL
     Indication: OVARIAN CANCER
     Route: 041
  5. LYRICA [Concomitant]
     Active Substance: PREGABALIN
     Indication: HYPOAESTHESIA
     Route: 048
     Dates: start: 20150415
  6. AVASTIN [Suspect]
     Active Substance: BEVACIZUMAB
     Indication: OVARIAN CANCER
     Route: 041
     Dates: start: 20150514, end: 20160318

REACTIONS (16)
  - Generalised erythema [Recovering/Resolving]
  - Malaise [Recovering/Resolving]
  - Gastritis erosive [Unknown]
  - Abdominal pain upper [Unknown]
  - Urticarial vasculitis [Recovered/Resolved]
  - Eczema eyelids [Recovering/Resolving]
  - Pharyngeal oedema [Unknown]
  - Muscular weakness [Recovering/Resolving]
  - Eyelid oedema [Recovering/Resolving]
  - Face oedema [Unknown]
  - Pain in extremity [Recovered/Resolved]
  - Pruritus generalised [Recovering/Resolving]
  - Musculoskeletal pain [Unknown]
  - Paronychia [Recovering/Resolving]
  - Lip oedema [Unknown]
  - Tracheal obstruction [Unknown]

NARRATIVE: CASE EVENT DATE: 20150527
